FAERS Safety Report 16259894 (Version 1)
Quarter: 2019Q2

REPORT INFORMATION
  Report Type: Spontaneous
  Country: FR (occurrence: FR)
  Receive Date: 20190501
  Receipt Date: 20190501
  Transmission Date: 20190711
  Serious: Yes (Hospitalization, Other)
  Sender: FDA-Public Use
  Company Number: FR-MYLANLABS-2019M1040783

PATIENT
  Age: 36 Year
  Sex: Female
  Weight: 62 kg

DRUGS (1)
  1. AZATHIOPRINE. [Suspect]
     Active Substance: AZATHIOPRINE
     Indication: COLITIS
     Dosage: UNK
     Route: 048
     Dates: start: 2009, end: 20181003

REACTIONS (3)
  - Maternal exposure during pregnancy [Recovered/Resolved]
  - Pruritus generalised [Recovered/Resolved]
  - Cholestasis of pregnancy [Recovering/Resolving]

NARRATIVE: CASE EVENT DATE: 20181002
